FAERS Safety Report 9181983 (Version 1)
Quarter: 2013Q1

REPORT INFORMATION
  Report Type: Spontaneous
  Country: SE (occurrence: SE)
  Receive Date: 20130322
  Receipt Date: 20130322
  Transmission Date: 20140127
  Serious: Yes (Hospitalization)
  Sender: FDA-Public Use
  Company Number: SE-JNJFOC-20130309312

PATIENT
  Age: 49 Year
  Sex: Male

DRUGS (2)
  1. IPREN [Suspect]
     Indication: ANKYLOSING SPONDYLITIS
     Route: 065
  2. TRAMADOL [Concomitant]
     Indication: ANKYLOSING SPONDYLITIS
     Route: 065

REACTIONS (4)
  - Dehydration [Unknown]
  - Blood creatinine increased [Recovered/Resolved]
  - Diarrhoea [Unknown]
  - Nausea [Unknown]
